FAERS Safety Report 9514551 (Version 1)
Quarter: 2013Q3

REPORT INFORMATION
  Report Type: Spontaneous
  Country: US (occurrence: US)
  Receive Date: 20130911
  Receipt Date: 20130911
  Transmission Date: 20140515
  Serious: No
  Sender: FDA-Public Use
  Company Number: US-009507513-1308USA005521

PATIENT
  Sex: Male

DRUGS (2)
  1. DULERA [Suspect]
     Dosage: 2 DF, BID
     Route: 055
  2. DULERA [Suspect]
     Dosage: UNK
     Route: 055

REACTIONS (6)
  - Dyspnoea [Not Recovered/Not Resolved]
  - Increased upper airway secretion [Not Recovered/Not Resolved]
  - Dry mouth [Not Recovered/Not Resolved]
  - Underdose [Unknown]
  - Circumstance or information capable of leading to medication error [Unknown]
  - Wrong technique in drug usage process [Unknown]
